FAERS Safety Report 10873589 (Version 1)
Quarter: 2015Q1

REPORT INFORMATION
  Report Type: Spontaneous
  Country: FR (occurrence: FR)
  Receive Date: 20150227
  Receipt Date: 20150227
  Transmission Date: 20150721
  Serious: Yes (Hospitalization)
  Sender: FDA-Public Use
  Company Number: FR-SA-2015SA022116

PATIENT
  Age: 96 Year
  Sex: Male

DRUGS (16)
  1. ESIDREX [Suspect]
     Active Substance: HYDROCHLOROTHIAZIDE
     Route: 048
  2. MOGADON [Concomitant]
     Active Substance: NITRAZEPAM
     Dosage: STRENGTH:5 MG, SCORED TABLET AT EVENING
     Route: 048
  3. FUROSEMIDE. [Suspect]
     Active Substance: FUROSEMIDE
     Dosage: DOSE 1 OR 2 TABLETS
     Route: 048
  4. ATORVASTATIN [Concomitant]
     Active Substance: ATORVASTATIN
     Dosage: STRENGTH:10 MG AT EVENING
     Route: 048
  5. LANTUS [Suspect]
     Active Substance: INSULIN GLARGINE
     Route: 058
  6. NAFTIDROFURYL [Concomitant]
     Active Substance: NAFRONYL
     Dosage: STRENGTH:200
     Route: 048
  7. PERMIXON [Concomitant]
     Active Substance: SAW PALMETTO
     Dosage: STRENGTH: 160 MG AT MORNING
     Route: 048
  8. ENALAPRIL MALEATE. [Suspect]
     Active Substance: ENALAPRIL MALEATE
     Route: 048
  9. KAYEXALATE [Concomitant]
     Active Substance: SODIUM POLYSTYRENE SULFONATE
     Route: 048
  10. MACROGOL [Concomitant]
     Active Substance: POLYETHYLENE GLYCOLS
     Route: 048
  11. ALPRAZOLAM. [Suspect]
     Active Substance: ALPRAZOLAM
     Route: 048
  12. AMIODARONE HYDROCHLORIDE. [Concomitant]
     Active Substance: AMIODARONE HYDROCHLORIDE
     Dosage: STRENGTH: 200, FREQUENCY: AT MIDDAY
     Route: 048
  13. KARDEGIC [Concomitant]
     Active Substance: ASPIRIN LYSINE
     Dosage: STRENGTH:160 MG AT MIDDAY
     Route: 048
  14. AVODART [Concomitant]
     Active Substance: DUTASTERIDE
     Dosage: STRENGTH:0.5 MG AT EVENING
     Route: 048
  15. PAROXETINE [Suspect]
     Active Substance: PAROXETINE\PAROXETINE HYDROCHLORIDE
     Route: 048
  16. HUMALOG [Suspect]
     Active Substance: INSULIN LISPRO
     Dosage: DOSE: ACCORDING TO GLUCOSE
     Route: 058

REACTIONS (2)
  - Vertigo [Recovered/Resolved]
  - Fall [Unknown]

NARRATIVE: CASE EVENT DATE: 2014
